FAERS Safety Report 4496498-3 (Version None)
Quarter: 2004Q3

REPORT INFORMATION
  Report Type: 
  Country: None (occurrence: None)
  Receive Date: 20040923
  Receipt Date: 20040227
  Transmission Date: 20050211
  Serious: Yes (Other)
  Sender: FDA-Public Use
  Company Number: 2004004002

PATIENT
  Age: 39 Year
  Sex: Female
  Weight: 53.5244 kg

DRUGS (2)
  1. ZYRTEC [Suspect]
     Indication: FOOD ALLERGY
     Dosage: 10 MG (DAILY), ORAL
     Route: 048
     Dates: start: 20040101
  2. MESALAMINE [Concomitant]

REACTIONS (6)
  - ABDOMINAL PAIN UPPER [None]
  - DIARRHOEA [None]
  - DRUG INEFFECTIVE [None]
  - INFLAMMATION [None]
  - RECTAL HAEMORRHAGE [None]
  - SINUSITIS [None]
